FAERS Safety Report 18500684 (Version 2)
Quarter: 2021Q2

REPORT INFORMATION
  Report Type: Spontaneous
  Country: KR (occurrence: KR)
  Receive Date: 20201113
  Receipt Date: 20210419
  Transmission Date: 20210717
  Serious: Yes (Death, Other)
  Sender: FDA-Public Use
  Company Number: KR-009507513-2011KOR008802

PATIENT
  Sex: Female

DRUGS (1)
  1. PEMBROLIZUMAB. [Suspect]
     Active Substance: PEMBROLIZUMAB
     Indication: CERVIX CARCINOMA
     Dosage: 200 MILLIGRAM, EVERY 3 WEEKS, FIRST CYCLE
     Route: 042

REACTIONS (3)
  - Pulmonary oedema [Fatal]
  - Pneumonitis [Fatal]
  - Off label use [Unknown]
